FAERS Safety Report 21720686 (Version 1)
Quarter: 2022Q4

REPORT INFORMATION
  Report Type: Spontaneous
  Country: DK (occurrence: DK)
  Receive Date: 20221213
  Receipt Date: 20221213
  Transmission Date: 20230113
  Serious: Yes (Death, Hospitalization)
  Sender: FDA-Public Use
  Company Number: None

PATIENT
  Age: 10 Year
  Sex: Female

DRUGS (2)
  1. CISPLATIN [Suspect]
     Active Substance: CISPLATIN
     Indication: Osteosarcoma
     Dates: start: 20210610, end: 20220307
  2. DOXORUBICIN [Suspect]
     Active Substance: DOXORUBICIN
     Indication: Osteosarcoma
     Dates: start: 20210610, end: 20220307

REACTIONS (13)
  - Tumour lysis syndrome [Unknown]
  - Malaise [Unknown]
  - Haematemesis [Unknown]
  - Acute myeloid leukaemia [Fatal]
  - Increased tendency to bruise [Unknown]
  - Multiple organ dysfunction syndrome [Fatal]
  - Incorrect drug administration rate [Unknown]
  - Tinnitus [Unknown]
  - Liver injury [Unknown]
  - Skin haemorrhage [Unknown]
  - Hypoacusis [Unknown]
  - Haematochezia [Unknown]
  - Inappropriate schedule of product administration [Unknown]

NARRATIVE: CASE EVENT DATE: 20210920
